FAERS Safety Report 23784244 (Version 2)
Quarter: 2024Q2

REPORT INFORMATION
  Report Type: Spontaneous
  Country: CA (occurrence: CA)
  Receive Date: 20240425
  Receipt Date: 20240620
  Transmission Date: 20240716
  Serious: Yes (Other)
  Sender: FDA-Public Use
  Company Number: CA-PFIZER INC-202300171942

PATIENT
  Age: 57 Year
  Sex: Female

DRUGS (2)
  1. ABRILADA [Suspect]
     Active Substance: ADALIMUMAB-AFZB
     Indication: Hidradenitis
     Dosage: 1 DF, WEEK0 160MG, WEEK2 80MG, THEN 40MG EVERY WEEK STARTING WEEK4
     Route: 058
     Dates: start: 20230421, end: 2024
  2. ABRILADA [Suspect]
     Active Substance: ADALIMUMAB-AFZB
     Dosage: 1 DF, WEEK0 160MG, WEEK2 80MG, THEN 40MG EVERY WEEK STARTING WEEK4
     Route: 058
     Dates: start: 202403

REACTIONS (5)
  - Neoplasm [Recovering/Resolving]
  - Therapeutic response unexpected [Unknown]
  - Injection site mass [Recovered/Resolved]
  - Furuncle [Unknown]
  - Condition aggravated [Unknown]

NARRATIVE: CASE EVENT DATE: 20230101
